FAERS Safety Report 18330497 (Version 1)
Quarter: 2020Q3

REPORT INFORMATION
  Report Type: Spontaneous
  Country: FR (occurrence: FR)
  Receive Date: 20200930
  Receipt Date: 20200930
  Transmission Date: 20201103
  Serious: Yes (Hospitalization, Other)
  Sender: FDA-Public Use
  Company Number: FR-ALEXION-A202014146

PATIENT
  Age: 2 Year
  Sex: Male
  Weight: 11.92 kg

DRUGS (2)
  1. SOLIRIS [Suspect]
     Active Substance: ECULIZUMAB
     Indication: HAEMOLYTIC URAEMIC SYNDROME
     Dosage: 600 MG, 1/DAY
     Route: 042
     Dates: start: 20200723, end: 20200723
  2. SOLIRIS [Suspect]
     Active Substance: ECULIZUMAB
     Indication: OFF LABEL USE
     Dosage: 300 MG, 1/DAY
     Route: 042
     Dates: start: 20200730, end: 20200730

REACTIONS (3)
  - Hepatocellular injury [Not Recovered/Not Resolved]
  - Off label use [Unknown]
  - Cholestasis [Not Recovered/Not Resolved]

NARRATIVE: CASE EVENT DATE: 20200723
